FAERS Safety Report 16244358 (Version 1)
Quarter: 2019Q2

REPORT INFORMATION
  Report Type: Report from Study
  Country: CO (occurrence: CO)
  Receive Date: 20190426
  Receipt Date: 20190426
  Transmission Date: 20190711
  Serious: Yes (Hospitalization)
  Sender: FDA-Public Use
  Company Number: CO-JNJFOC-20190428786

PATIENT
  Age: 30 Year
  Sex: Male
  Weight: 55 kg

DRUGS (1)
  1. RISPERDAL CONSTA [Suspect]
     Active Substance: RISPERIDONE
     Indication: SCHIZOPHRENIA
     Route: 030
     Dates: start: 20181214, end: 20190205

REACTIONS (3)
  - Malaise [Recovered/Resolved]
  - Antisocial behaviour [Unknown]
  - Anger [Recovering/Resolving]

NARRATIVE: CASE EVENT DATE: 20190301
